FAERS Safety Report 4689211-8 (Version None)
Quarter: 2005Q2

REPORT INFORMATION
  Report Type: 
  Country: None (occurrence: None)
  Receive Date: 20050608
  Receipt Date: 20050202
  Transmission Date: 20051028
  Serious: No
  Sender: FDA-Public Use
  Company Number: 2005-BP-00789BP

PATIENT
  Age: 91 Year
  Sex: Female

DRUGS (17)
  1. SPIRIVA [Suspect]
     Indication: ASTHMA
     Dosage: 18 MCG (18 MCG, QD), IH
     Route: 055
     Dates: start: 20041219, end: 20041226
  2. SPIRIVA [Suspect]
     Indication: NASOPHARYNGITIS
     Dosage: 18 MCG (18 MCG), IH
     Route: 055
     Dates: start: 20041229, end: 20050103
  3. OCUVITE(OCUVITE) [Concomitant]
  4. MEXILETINE HCL [Concomitant]
  5. FOLTRIN(FEROTRINSIC) [Concomitant]
  6. K-DUR 10 [Concomitant]
  7. ASPIRIN [Concomitant]
  8. PRILOSEC [Concomitant]
  9. PREDNISONE [Concomitant]
  10. FLOVENT [Concomitant]
  11. LASIX [Concomitant]
  12. VERAPAMIL [Concomitant]
  13. BENEMIDE(PROBENECID) [Concomitant]
  14. CALTRATE(CALCIUM CARBONATE) [Concomitant]
  15. CENTRUM SILVER(CENTRUM SILVER) [Concomitant]
  16. SINGULAIR(MONTELUKAST) [Concomitant]
  17. METAMUCIL [Concomitant]

REACTIONS (3)
  - DYSGEUSIA [None]
  - OEDEMA PERIPHERAL [None]
  - URINARY RETENTION [None]
